APPROVED DRUG PRODUCT: RIVASTIGMINE TARTRATE
Active Ingredient: RIVASTIGMINE TARTRATE
Strength: EQ 1.5MG BASE
Dosage Form/Route: CAPSULE;ORAL
Application: A204572 | Product #001 | TE Code: AB
Applicant: AUROBINDO PHARMA LTD
Approved: Mar 25, 2016 | RLD: No | RS: No | Type: RX